FAERS Safety Report 7781171-6 (Version None)
Quarter: 2011Q3

REPORT INFORMATION
  Report Type: 
  Country: None (occurrence: None)
  Receive Date: 20110927
  Receipt Date: 20110926
  Transmission Date: 20111222
  Serious: Yes (Death)
  Sender: FDA-Public Use
  Company Number: PHHY2011NL62264

PATIENT
  Sex: Female

DRUGS (3)
  1. ZOMETA [Suspect]
     Indication: BREAST CANCER METASTATIC
     Dosage: 4 MG
     Route: 042
     Dates: start: 20091001
  2. ZOMETA [Suspect]
     Dosage: 4 MG/5 ML
     Dates: start: 20110606
  3. ZOMETA [Suspect]
     Indication: METASTASIS
     Dosage: 4 MG/5 ML
     Dates: start: 20110505

REACTIONS (2)
  - NEOPLASM PROGRESSION [None]
  - NEOPLASM MALIGNANT [None]
